FAERS Safety Report 23446322 (Version 1)
Quarter: 2024Q1

REPORT INFORMATION
  Report Type: Spontaneous
  Country: US (occurrence: None)
  Receive Date: 20240125
  Receipt Date: 20240125
  Transmission Date: 20240410
  Serious: No
  Sender: FDA-Public Use
  Company Number: None

PATIENT
  Age: 35 Year
  Sex: Female

DRUGS (1)
  1. COSENTYX [Suspect]
     Active Substance: SECUKINUMAB
     Indication: Psoriasis
     Dosage: OTHER QUANTITY : 300MG (2 PENS(;?FREQUENCY : AS DIRECTED;?
     Route: 058
     Dates: start: 202312

REACTIONS (4)
  - Respiratory tract infection [None]
  - Diarrhoea [None]
  - Fatigue [None]
  - Rhinorrhoea [None]
